FAERS Safety Report 7611403-6 (Version None)
Quarter: 2011Q3

REPORT INFORMATION
  Report Type: 
  Country: None (occurrence: None)
  Receive Date: 20110715
  Receipt Date: 20110704
  Transmission Date: 20111222
  Serious: Yes (Death)
  Sender: FDA-Public Use
  Company Number: NL-ROCHE-787825

PATIENT
  Age: 51 Year
  Sex: Female

DRUGS (4)
  1. MYCOPHENOLATE MOFETIL [Suspect]
     Route: 065
  2. TACROLIMUS [Suspect]
     Dosage: REDUCED DOSAGE
     Route: 048
  3. TACROLIMUS [Suspect]
     Route: 048
  4. PREDNISONE [Suspect]
     Route: 065

REACTIONS (3)
  - PULMONARY THROMBOSIS [None]
  - SEPSIS [None]
  - ASPERGILLOSIS [None]
